FAERS Safety Report 6036846-6 (Version None)
Quarter: 2009Q1

REPORT INFORMATION
  Report Type: 
  Country: None (occurrence: None)
  Receive Date: 20090114
  Receipt Date: 20090107
  Transmission Date: 20090719
  Serious: Yes (Other)
  Sender: FDA-Public Use
  Company Number: PHEH2009US00526

PATIENT
  Sex: Female

DRUGS (8)
  1. AREDIA [Suspect]
     Indication: BREAST CANCER
     Dosage: 90 MG, QMO
     Route: 042
  2. ZOMETA [Suspect]
     Indication: BREAST CANCER
     Dosage: 4 MG, MONTHLY
     Route: 042
  3. ARIMIDEX [Concomitant]
     Dosage: UNK
  4. FEMARA [Concomitant]
  5. ADRIAMYCIN PFS [Concomitant]
  6. 5-FU [Concomitant]
  7. TAMOXIFEN CITRATE [Concomitant]
  8. PROZAC [Concomitant]

REACTIONS (1)
  - BONE DISORDER [None]
